FAERS Safety Report 15975001 (Version 1)
Quarter: 2019Q1

REPORT INFORMATION
  Report Type: Spontaneous
  Country: US (occurrence: US)
  Receive Date: 20190218
  Receipt Date: 20190218
  Transmission Date: 20190418
  Serious: No
  Sender: FDA-Public Use
  Company Number: US-PFIZER INC-2019059880

PATIENT
  Age: 31 Year
  Sex: Female
  Weight: 86.18 kg

DRUGS (2)
  1. GABAPENTIN. [Suspect]
     Active Substance: GABAPENTIN
     Dosage: 100 MG, UNK
     Dates: start: 201812
  2. GABAPENTIN. [Suspect]
     Active Substance: GABAPENTIN
     Indication: DIABETIC NEUROPATHY
     Dosage: 300 MG, UNK
     Dates: start: 2016

REACTIONS (6)
  - Agitation [Unknown]
  - Anger [Unknown]
  - Aggression [Unknown]
  - Irritability [Unknown]
  - Hypersensitivity [Unknown]
  - Product use in unapproved indication [Unknown]
